FAERS Safety Report 9848241 (Version 1)
Quarter: 2014Q1

REPORT INFORMATION
  Report Type: Spontaneous
  Country: US (occurrence: US)
  Receive Date: 20140128
  Receipt Date: 20140128
  Transmission Date: 20141002
  Serious: No
  Sender: FDA-Public Use
  Company Number: US-PFIZER INC-2014023389

PATIENT
  Sex: Female

DRUGS (5)
  1. ZOLOFT [Suspect]
     Dosage: UNK
  2. PAXIL [Suspect]
     Dosage: UNK
  3. WELLBUTRIN [Suspect]
     Dosage: UNK
  4. SAVELLA [Suspect]
     Dosage: UNK
  5. CYMBALTA [Suspect]
     Dosage: UNK

REACTIONS (9)
  - Drug hypersensitivity [Unknown]
  - Inflammation [Unknown]
  - Swelling [Unknown]
  - Pruritus [Unknown]
  - Rash [Unknown]
  - Malaise [Unknown]
  - Palpitations [Unknown]
  - Crying [Unknown]
  - Insomnia [Unknown]
